FAERS Safety Report 8204642-7 (Version None)
Quarter: 2012Q1

REPORT INFORMATION
  Report Type: 
  Country: None (occurrence: None)
  Receive Date: 20120313
  Receipt Date: 20120306
  Transmission Date: 20120608
  Serious: Yes (Death, Hospitalization, Other)
  Sender: FDA-Public Use
  Company Number: US-ELI_LILLY_AND_COMPANY-US201202005804

PATIENT
  Sex: Female
  Weight: 62.585 kg

DRUGS (14)
  1. PERCOCET [Concomitant]
     Dosage: 7.5 / 325 DF
  2. ALOXI [Concomitant]
  3. AVASTIN [Concomitant]
  4. VITAMIN B-12 [Concomitant]
     Dosage: 1000 DF, OTHER
     Route: 058
     Dates: start: 20101230, end: 20110303
  5. ALIMTA [Suspect]
     Indication: LUNG NEOPLASM MALIGNANT
     Dosage: 500 MG/M2, EVERY 21 DAYS
     Route: 042
     Dates: start: 20101230, end: 20110303
  6. MS CONTIN [Concomitant]
     Dosage: 30 MG, UNKNOWN
     Route: 048
  7. FOLIC ACID [Concomitant]
     Dosage: 1 MG, QD
     Route: 048
     Dates: start: 20101216, end: 20110303
  8. ATIVAN [Concomitant]
     Dosage: 1 MG, PRN
     Route: 048
  9. NEURONTIN [Concomitant]
     Dosage: 300 MG, TID
     Route: 048
  10. TOPROL-XL [Concomitant]
     Dosage: 50 MG, QD
     Route: 048
     Dates: start: 20101216
  11. DECADRON [Concomitant]
     Dosage: 4 MG, BID
     Route: 048
     Dates: start: 20101230, end: 20110303
  12. MEGACE ES [Concomitant]
     Indication: APPETITE DISORDER
     Dosage: 625 MG, QD
     Route: 048
     Dates: start: 20110106
  13. DURAGESIC-100 [Concomitant]
     Dosage: 100 MEQ, UNKNOWN
     Route: 062
  14. ACETAMINOPHEN [Concomitant]
     Dosage: 325 MG, PRN
     Route: 048
     Dates: start: 19980101

REACTIONS (3)
  - HOSPICE CARE [None]
  - PAIN [None]
  - NEOPLASM MALIGNANT [None]
